FAERS Safety Report 8026956-6 (Version None)
Quarter: 2011Q4

REPORT INFORMATION
  Report Type: 
  Country: None (occurrence: None)
  Receive Date: 20111130
  Receipt Date: 20110727
  Transmission Date: 20120403
  Serious: Yes (Other)
  Sender: FDA-Public Use
  Company Number: US201007007862

PATIENT
  Sex: Female
  Weight: 89.8 kg

DRUGS (11)
  1. VYTORIN [Concomitant]
  2. JANUVIA [Concomitant]
  3. TRICOR [Concomitant]
  4. PREVACID [Concomitant]
  5. METFORMIN HCL [Concomitant]
  6. LANTUS [Concomitant]
  7. ENALAPRIL MALEATE [Concomitant]
  8. EFFEXOR XR [Concomitant]
  9. BYETTA [Suspect]
     Indication: DIABETES MELLITUS
     Dates: start: 20061001, end: 20090101
  10. ASPIRIN [Concomitant]
  11. SINGULAIR [Concomitant]

REACTIONS (5)
  - PANCREATITIS [None]
  - DEPRESSION [None]
  - GASTROINTESTINAL DISORDER [None]
  - OFF LABEL USE [None]
  - RENAL FAILURE [None]
